FAERS Safety Report 5200491-2 (Version None)
Quarter: 2007Q1

REPORT INFORMATION
  Report Type: 
  Country: None (occurrence: None)
  Receive Date: 20070105
  Receipt Date: 20061229
  Transmission Date: 20070707
  Serious: Yes (Other)
  Sender: FDA-Public Use
  Company Number: US-ABBOTT-07P-163-0354696-00

PATIENT
  Age: 35 Year
  Sex: Female

DRUGS (4)
  1. KALETRA [Suspect]
     Indication: SYSTEMIC ANTIVIRAL TREATMENT
     Route: 048
     Dates: start: 20060324
  2. DIDANOSINE [Suspect]
     Indication: SYSTEMIC ANTIVIRAL TREATMENT
     Route: 048
  3. LAMIVUDINE [Suspect]
     Indication: SYSTEMIC ANTIVIRAL TREATMENT
     Route: 048
  4. EFAVIRENZ [Suspect]
     Indication: SYSTEMIC ANTIVIRAL TREATMENT
     Route: 048
     Dates: end: 20060324

REACTIONS (1)
  - ABORTION SPONTANEOUS [None]
